FAERS Safety Report 8822125 (Version 1)
Quarter: 2012Q4

REPORT INFORMATION
  Report Type: 
  Country: US (occurrence: US)
  Receive Date: 20121003
  Receipt Date: 20121003
  Transmission Date: 20130627
  Serious: Yes (Other)
  Sender: FDA-Public Use
  Company Number: US-SANOFI-AVENTIS-2012SA070074

PATIENT
  Age: 73 Year
  Sex: Male

DRUGS (5)
  1. LANTUS SOLOSTAR [Suspect]
     Indication: TYPE II DIABETES MELLITUS
     Dosage: Dose:20 unit(s)
     Route: 058
     Dates: end: 201209
  2. LANTUS SOLOSTAR [Suspect]
     Indication: TYPE II DIABETES MELLITUS
     Dosage: Dose:28 unit(s)
     Route: 058
  3. SOLOSTAR [Suspect]
     Indication: TYPE II DIABETES MELLITUS
  4. BYETTA [Suspect]
     Route: 065
  5. ATORVASTATIN [Concomitant]

REACTIONS (4)
  - Bronchopneumonia [Unknown]
  - Syncope [Unknown]
  - Blood glucose increased [Unknown]
  - Myalgia [Unknown]
